FAERS Safety Report 12694393 (Version 1)
Quarter: 2016Q3

REPORT INFORMATION
  Report Type: Spontaneous
  Country: US (occurrence: US)
  Receive Date: 20160829
  Receipt Date: 20160829
  Transmission Date: 20161109
  Serious: Yes (Hospitalization)
  Sender: FDA-Public Use
  Company Number: US-BAYER-2016-042496

PATIENT
  Age: 86 Year
  Sex: Male

DRUGS (9)
  1. XARELTO [Suspect]
     Active Substance: RIVAROXABAN
     Indication: DEEP VEIN THROMBOSIS
  2. ACETYLSALICYLIC ACID({=100 MG) [Suspect]
     Active Substance: ASPIRIN
     Indication: PRODUCT USED FOR UNKNOWN INDICATION
     Dosage: 81 MG, UNK
     Route: 048
  3. OXYCODONE [Concomitant]
     Active Substance: OXYCODONE
     Dosage: 10 MG, TID
     Route: 048
  4. ACETAMINOPHEN. [Concomitant]
     Active Substance: ACETAMINOPHEN
     Indication: PRODUCT USED FOR UNKNOWN INDICATION
     Dosage: 325 MG, TID
     Route: 048
  5. CARVEDILOL. [Concomitant]
     Active Substance: CARVEDILOL
     Dosage: 12.5 MG, UNK
     Route: 048
  6. DOXYCYCLINE. [Concomitant]
     Active Substance: DOXYCYCLINE
     Dosage: 100 MG, UNK
     Route: 048
  7. ATORVASTATIN [Concomitant]
     Active Substance: ATORVASTATIN
     Dosage: 40 MG, UNK
     Route: 048
  8. XARELTO [Suspect]
     Active Substance: RIVAROXABAN
     Indication: PULMONARY EMBOLISM
     Dosage: 20 MG, UNK
     Route: 048
     Dates: start: 201201, end: 201403
  9. XARELTO [Suspect]
     Active Substance: RIVAROXABAN
     Indication: EMBOLISM VENOUS

REACTIONS (2)
  - Internal haemorrhage [Unknown]
  - Haematochezia [Recovered/Resolved]

NARRATIVE: CASE EVENT DATE: 201401
